FAERS Safety Report 4449447-8 (Version None)
Quarter: 2004Q3

REPORT INFORMATION
  Report Type: 
  Country: None (occurrence: None)
  Receive Date: 20040909
  Receipt Date: 20040830
  Transmission Date: 20050211
  Serious: Yes (Life-Threatening, Other)
  Sender: FDA-Public Use
  Company Number: D01200403353

PATIENT
  Weight: 91 kg

DRUGS (4)
  1. FONDAPARINUX -SOLUTION - UNIT DOSE : UNKNOWN [Suspect]
     Indication: ANGINA UNSTABLE
     Dosage: 2.5 MG QD - SUBCUTANEOUS
     Route: 058
  2. FONDAPARINUX -SOLUTION - UNIT DOSE : UNKNOWN [Suspect]
     Indication: MYOCARDIAL INFARCTION
     Dosage: 2.5 MG QD - SUBCUTANEOUS
     Route: 058
  3. ACETYLSALICYLIC ACID [Concomitant]
  4. HEPARIN [Concomitant]

REACTIONS (4)
  - CARDIAC DISORDER [None]
  - CHEST PAIN [None]
  - INTRACARDIAC THROMBUS [None]
  - VENTRICULAR FIBRILLATION [None]
